FAERS Safety Report 17932222 (Version 3)
Quarter: 2020Q3

REPORT INFORMATION
  Report Type: Report from Study
  Country: US (occurrence: US)
  Receive Date: 20200623
  Receipt Date: 20200722
  Transmission Date: 20201103
  Serious: Yes (Hospitalization)
  Sender: FDA-Public Use
  Company Number: US-ACTELION-A-NJ2016-129504

PATIENT
  Age: 56 Year
  Sex: Female
  Weight: 65.31 kg

DRUGS (8)
  1. SILDENAFIL. [Concomitant]
     Active Substance: SILDENAFIL
  2. VELETRI [Suspect]
     Active Substance: EPOPROSTENOL
     Dosage: 26 NG/KG, PER MIN
     Route: 042
  3. VELETRI [Suspect]
     Active Substance: EPOPROSTENOL
     Dosage: 8 NG/KG, UNK
     Route: 042
     Dates: start: 20151227
  4. OPSUMIT [Suspect]
     Active Substance: MACITENTAN
     Indication: PULMONARY ARTERIAL HYPERTENSION
     Dosage: 10 MG, QD
     Route: 048
     Dates: start: 20151231
  5. VELETRI [Suspect]
     Active Substance: EPOPROSTENOL
     Indication: PULMONARY ARTERIAL HYPERTENSION
     Dosage: 26 NG/KG, PER MIN
     Route: 042
  6. VELETRI [Suspect]
     Active Substance: EPOPROSTENOL
     Dosage: 25 NG/KG, PER MIN
     Route: 042
  7. VELETRI [Suspect]
     Active Substance: EPOPROSTENOL
     Dosage: 26 NG/KG, PER MIN
     Route: 042
  8. LASIX [Concomitant]
     Active Substance: FUROSEMIDE

REACTIONS (40)
  - Pulmonary oedema [Unknown]
  - Vomiting [Recovering/Resolving]
  - Erythema [Unknown]
  - Weight decreased [Unknown]
  - Fluid retention [Unknown]
  - Pyrexia [Unknown]
  - Hypokalaemia [Unknown]
  - Nasopharyngitis [Not Recovered/Not Resolved]
  - Nausea [Recovering/Resolving]
  - Rash [Unknown]
  - Cardiac flutter [Unknown]
  - Hot flush [Unknown]
  - Dyspnoea exertional [Unknown]
  - Paranasal sinus discomfort [Unknown]
  - Dyspnoea [Recovering/Resolving]
  - Peripheral swelling [Unknown]
  - Oedema peripheral [Unknown]
  - Rash macular [Unknown]
  - Fatigue [Unknown]
  - Headache [Unknown]
  - Dry mouth [Unknown]
  - Cough [Recovering/Resolving]
  - Swelling [Unknown]
  - Catheter site discharge [Recovered/Resolved]
  - Weight increased [Unknown]
  - Palpitations [Unknown]
  - Unevaluable event [Recovering/Resolving]
  - Pneumonia [Unknown]
  - Pain in jaw [Unknown]
  - Infusion site discharge [Unknown]
  - Sleep disorder [Unknown]
  - Myalgia [Unknown]
  - Glaucoma [Unknown]
  - Diarrhoea [Unknown]
  - Appetite disorder [Unknown]
  - White blood cell disorder [Unknown]
  - Blood creatinine increased [Unknown]
  - Flushing [Unknown]
  - Walking distance test abnormal [Unknown]
  - Dry eye [Unknown]

NARRATIVE: CASE EVENT DATE: 201910
